FAERS Safety Report 22158458 (Version 1)
Quarter: 2023Q1

REPORT INFORMATION
  Report Type: Other
  Country: US (occurrence: None)
  Receive Date: 20230331
  Receipt Date: 20230331
  Transmission Date: 20230418
  Serious: Yes (Other)
  Sender: FDA-Public Use
  Company Number: US-ROCHE-2471923

PATIENT
  Age: 53 Year
  Sex: Male

DRUGS (13)
  1. AVASTIN [Suspect]
     Active Substance: BEVACIZUMAB
     Indication: Hereditary haemorrhagic telangiectasia
     Route: 042
     Dates: start: 2017
  2. AVASTIN [Suspect]
     Active Substance: BEVACIZUMAB
     Route: 042
     Dates: start: 20190812
  3. AVASTIN [Suspect]
     Active Substance: BEVACIZUMAB
     Dosage: DATE OF SERVICE 21/JUL/2022
     Route: 042
  4. LYSTEDA [Concomitant]
     Active Substance: TRANEXAMIC ACID
  5. SPIRONOLACTONE [Concomitant]
     Active Substance: SPIRONOLACTONE
  6. PANTOPRAZOLE [Concomitant]
     Active Substance: PANTOPRAZOLE
  7. MELATONIN [Concomitant]
     Active Substance: MELATONIN
  8. LASIX [Concomitant]
     Active Substance: FUROSEMIDE
  9. FERROUS SULFATE [Concomitant]
     Active Substance: FERROUS SULFATE
  10. ESOMEPRAZOLE [Concomitant]
     Active Substance: ESOMEPRAZOLE
  11. ERYTHROMYCIN [Concomitant]
     Active Substance: ERYTHROMYCIN
  12. CARVEDILOL [Concomitant]
     Active Substance: CARVEDILOL
  13. OPTIVE SENSITIVE [Concomitant]

REACTIONS (17)
  - Portal hypertension [Unknown]
  - Melaena [Unknown]
  - Meningioma [Unknown]
  - Hemiparesis [Unknown]
  - Deafness unilateral [Unknown]
  - Epistaxis [Unknown]
  - Dyspepsia [Unknown]
  - Malnutrition [Unknown]
  - Intestinal mass [Unknown]
  - Neoplasm of appendix [Unknown]
  - Dysarthria [Unknown]
  - Hypoaesthesia [Unknown]
  - Cranial nerve paralysis [Unknown]
  - Ulnocarpal abutment syndrome [Unknown]
  - Arthralgia [Unknown]
  - Dysphagia [Unknown]
  - Off label use [Unknown]

NARRATIVE: CASE EVENT DATE: 20170101
